FAERS Safety Report 25612134 (Version 1)
Quarter: 2025Q3

REPORT INFORMATION
  Report Type: Spontaneous
  Country: EU (occurrence: EU)
  Receive Date: 20250728
  Receipt Date: 20250728
  Transmission Date: 20251021
  Serious: Yes (Hospitalization, Other)
  Sender: SANOFI AVENTIS
  Company Number: EU-DialogSolutions-SAAVPROD-PI803093-C1

PATIENT
  Age: 25 Year
  Sex: Male

DRUGS (5)
  1. LEVOFLOXACIN [Suspect]
     Active Substance: LEVOFLOXACIN
     Indication: Mycobacterial infection
     Dosage: 750 MG, QD
     Dates: start: 202409
  2. RIFAMPIN [Suspect]
     Active Substance: RIFAMPIN
     Indication: Mycobacterial infection
     Dosage: 600 MG, QD
     Dates: start: 202407
  3. ISONIAZID [Suspect]
     Active Substance: ISONIAZID
     Indication: Mycobacterial infection
     Dosage: 300 MG, QD
     Dates: start: 202407
  4. ETHAMBUTOL [Suspect]
     Active Substance: ETHAMBUTOL HYDROCHLORIDE
     Indication: Mycobacterial infection
     Dosage: 1200 MG, QD
     Dates: start: 202407
  5. PYRAZINAMIDE [Suspect]
     Active Substance: PYRAZINAMIDE
     Indication: Mycobacterial infection
     Dosage: 1500 MG, QD
     Dates: start: 202407

REACTIONS (10)
  - Osteomyelitis [Recovering/Resolving]
  - Paradoxical drug reaction [Recovering/Resolving]
  - Pain in extremity [Recovered/Resolved]
  - Arthralgia [Recovered/Resolved]
  - Gait disturbance [Recovered/Resolved]
  - Subcutaneous abscess [Recovering/Resolving]
  - Nipple swelling [Recovered/Resolved]
  - Swelling [Recovered/Resolved]
  - Erythema [Recovered/Resolved]
  - Pain [Recovered/Resolved]
